FAERS Safety Report 18656813 (Version 1)
Quarter: 2020Q4

REPORT INFORMATION
  Report Type: Spontaneous
  Country: US (occurrence: US)
  Receive Date: 20201223
  Receipt Date: 20201223
  Transmission Date: 20210114
  Serious: No
  Sender: FDA-Public Use
  Company Number: US-ABBVIE-20K-163-3306039-00

PATIENT
  Age: 56 Year
  Sex: Male

DRUGS (4)
  1. ACETAMINOPHEN. [Concomitant]
     Active Substance: ACETAMINOPHEN
     Indication: PRODUCT USED FOR UNKNOWN INDICATION
  2. HYDROCODONE/ACETAMINOPHEN [Interacting]
     Active Substance: ACETAMINOPHEN\HYDROCODONE
     Indication: MIGRAINE
     Dosage: 10/325MG
     Route: 065
  3. LUPRON DEPOT [Suspect]
     Active Substance: LEUPROLIDE ACETATE
     Indication: PROSTATE CANCER
     Route: 030
     Dates: start: 20191101, end: 20191101
  4. KETOPROFEN. [Concomitant]
     Active Substance: KETOPROFEN
     Indication: PRODUCT USED FOR UNKNOWN INDICATION

REACTIONS (9)
  - Muscle atrophy [Recovering/Resolving]
  - Exercise tolerance decreased [Recovering/Resolving]
  - Weight increased [Recovering/Resolving]
  - Libido decreased [Recovering/Resolving]
  - Hot flush [Recovering/Resolving]
  - Hot flush [Recovered/Resolved]
  - Drug interaction [Unknown]
  - Fatigue [Recovering/Resolving]
  - Libido increased [Recovered/Resolved]

NARRATIVE: CASE EVENT DATE: 201911
